FAERS Safety Report 9130425 (Version 1)
Quarter: 2013Q1

REPORT INFORMATION
  Report Type: Spontaneous
  Country: GB (occurrence: GB)
  Receive Date: 20130301
  Receipt Date: 20130301
  Transmission Date: 20140127
  Serious: Yes (Congenital Anomaly, Other)
  Sender: FDA-Public Use
  Company Number: GB-B.I. PHARMACEUTICALS,INC./RIDGEFIELD-2013-UK-00244UK

PATIENT
  Age: 21 Week
  Sex: 0

DRUGS (2)
  1. VIRAMUNE [Suspect]
     Indication: MATERNAL EXPOSURE DURING PREGNANCY
     Dosage: 400 MG
     Route: 064
     Dates: start: 20060302
  2. TRUVADA [Suspect]
     Indication: MATERNAL EXPOSURE DURING PREGNANCY
     Dosage: 1DF DAILY
     Route: 064
     Dates: start: 20090901

REACTIONS (1)
  - Spina bifida [Recovered/Resolved]
